FAERS Safety Report 19452520 (Version 1)
Quarter: 2021Q2

REPORT INFORMATION
  Report Type: Other
  Country: US (occurrence: US)
  Receive Date: 20210623
  Receipt Date: 20210623
  Transmission Date: 20210717
  Serious: Yes (Other)
  Sender: FDA-Public Use
  Company Number: US-AJANTA PHARMA USA INC.-2113013

PATIENT
  Age: 70 Year
  Sex: Female

DRUGS (11)
  1. ASPIRIN. [Suspect]
     Active Substance: ASPIRIN
  2. DULOXETINE (ANDA 208706) [Suspect]
     Active Substance: DULOXETINE
     Indication: FIBROMYALGIA
  3. LOSARTAN. [Concomitant]
     Active Substance: LOSARTAN
  4. ROSUVASTATIN. [Concomitant]
     Active Substance: ROSUVASTATIN
  5. ASPART INSULIN [Concomitant]
     Active Substance: INSULIN ASPART
  6. LEVOTHYROXINE. [Concomitant]
     Active Substance: LEVOTHYROXINE
  7. HYDROCODONE [Concomitant]
     Active Substance: HYDROCODONE
  8. CARVEDILOL. [Concomitant]
     Active Substance: CARVEDILOL
  9. PREGABALIN. [Concomitant]
     Active Substance: PREGABALIN
  10. HYDROCHLOROTHIAZIDE. [Concomitant]
     Active Substance: HYDROCHLOROTHIAZIDE
  11. DETEMIR INSULIN [Concomitant]
     Active Substance: INSULIN DETEMIR

REACTIONS (4)
  - Anal incontinence [Unknown]
  - Urinary incontinence [Unknown]
  - Paraplegia [Unknown]
  - Extradural haematoma [Unknown]
